FAERS Safety Report 6263096-0 (Version None)
Quarter: 2009Q3

REPORT INFORMATION
  Report Type: 
  Country: None (occurrence: None)
  Receive Date: 20090708
  Receipt Date: 20090708
  Transmission Date: 20100115
  Serious: Yes (Disabling)
  Sender: FDA-Public Use
  Company Number: None

PATIENT
  Age: 50 Year
  Sex: Female
  Weight: 52.1637 kg

DRUGS (1)
  1. ZICAM NASAL SPRAY [Suspect]
     Indication: MULTIPLE ALLERGIES
     Dosage: ONE PUFF 2X DAILY SPRING/FALL 2X DAILY
     Dates: start: 20020101, end: 20090616

REACTIONS (1)
  - ANOSMIA [None]
